FAERS Safety Report 14715258 (Version 1)
Quarter: 2018Q2

REPORT INFORMATION
  Report Type: Spontaneous
  Country: US (occurrence: US)
  Receive Date: 20180404
  Receipt Date: 20180404
  Transmission Date: 20180711
  Serious: Yes (Hospitalization, Other)
  Sender: FDA-Public Use
  Company Number: US-BRISTOL-MYERS SQUIBB COMPANY-BMS-2018-027016

PATIENT
  Age: 79 Year
  Sex: Female

DRUGS (3)
  1. COUMADIN [Suspect]
     Active Substance: WARFARIN SODIUM
     Indication: THROMBOSIS
     Dosage: 2 MG, UNK
     Route: 048
  2. CIPROFLOXACIN. [Suspect]
     Active Substance: CIPROFLOXACIN
     Indication: KIDNEY INFECTION
     Dosage: UNK
     Route: 065
  3. CHLOROMYCETIN [Concomitant]
     Active Substance: CHLORAMPHENICOL
     Indication: PRODUCT USED FOR UNKNOWN INDICATION
     Route: 065

REACTIONS (13)
  - Gingival bleeding [Unknown]
  - Drug interaction [Unknown]
  - Kidney infection [Not Recovered/Not Resolved]
  - Tooth disorder [Unknown]
  - Haemorrhage [Unknown]
  - Nausea [Unknown]
  - Skin disorder [Unknown]
  - International normalised ratio abnormal [Unknown]
  - Skin wrinkling [Unknown]
  - Pain [Unknown]
  - Headache [Unknown]
  - Hair disorder [Recovering/Resolving]
  - Bone loss [Unknown]
